FAERS Safety Report 8214165-7 (Version None)
Quarter: 2012Q1

REPORT INFORMATION
  Report Type: 
  Country: None (occurrence: None)
  Receive Date: 20120316
  Receipt Date: 20120308
  Transmission Date: 20120608
  Serious: Yes (Hospitalization, Other)
  Sender: FDA-Public Use
  Company Number: US-BAYER-2011-013482

PATIENT
  Age: 38 Year
  Sex: Female
  Weight: 124.72 kg

DRUGS (10)
  1. AMBIEN [Concomitant]
     Dosage: UNK
     Dates: start: 20050101, end: 20100101
  2. KLONOPIN [Concomitant]
     Indication: NARCOLEPSY
     Dosage: UNK
     Dates: start: 20050101, end: 20100101
  3. TRAMADOL HCL [Concomitant]
     Dosage: UNK
     Dates: start: 20050101, end: 20100101
  4. YAZ [Suspect]
     Indication: PREMENSTRUAL SYNDROME
     Dosage: UNK
     Dates: start: 20080909, end: 20081202
  5. ABILIFY [Concomitant]
     Indication: BIPOLAR DISORDER
     Dosage: UNK
     Dates: start: 20050101, end: 20100101
  6. DEMEROL [Concomitant]
     Dosage: UNK
     Dates: start: 20050101, end: 20100101
  7. RESTORIL [Concomitant]
     Dosage: UNK
     Dates: start: 20050101, end: 20100101
  8. VICODIN [Concomitant]
     Dosage: UNK
     Dates: start: 20050101, end: 20100101
  9. XANAX [Concomitant]
     Dosage: UNK
     Dates: start: 20050101, end: 20100101
  10. TRAZODONE HCL [Concomitant]
     Dosage: UNK
     Dates: start: 20050101, end: 20100101

REACTIONS (8)
  - GALLBLADDER DISORDER [None]
  - PAIN [None]
  - CHOLECYSTITIS [None]
  - DEEP VEIN THROMBOSIS [None]
  - THROMBOSIS [None]
  - ANXIETY [None]
  - PULMONARY EMBOLISM [None]
  - EMOTIONAL DISTRESS [None]
